FAERS Safety Report 25487849 (Version 2)
Quarter: 2025Q3

REPORT INFORMATION
  Report Type: Spontaneous
  Country: US (occurrence: US)
  Receive Date: 20250627
  Receipt Date: 20250901
  Transmission Date: 20251020
  Serious: No
  Sender: CHATTEM
  Company Number: US-OPELLA-2025OHG018734

PATIENT
  Age: 3 Year
  Sex: Female

DRUGS (1)
  1. CHILDRENS ALLEGRA ALLERGY [Suspect]
     Active Substance: FEXOFENADINE HYDROCHLORIDE
     Indication: Rash
     Route: 065

REACTIONS (2)
  - Therapeutic product effect incomplete [Unknown]
  - No adverse event [Unknown]
